FAERS Safety Report 8620935-3 (Version None)
Quarter: 2012Q3

REPORT INFORMATION
  Report Type: 
  Country: None (occurrence: None)
  Receive Date: 20120824
  Receipt Date: 20120822
  Transmission Date: 20120928
  Serious: Yes (Hospitalization, Other)
  Sender: FDA-Public Use
  Company Number: US-PFIZER INC-2012121163

PATIENT
  Age: 65 Year
  Sex: Female

DRUGS (7)
  1. VOLTAREN [Concomitant]
  2. METHOTREXATE SODIUM [Suspect]
     Dosage: 20 MG
  3. ULTRAM [Concomitant]
  4. ENBREL [Suspect]
     Indication: RHEUMATOID ARTHRITIS
     Dosage: 50 MG, WEEKLY
     Dates: start: 20111221, end: 20120301
  5. PREDNISONE TAB [Concomitant]
     Dosage: UNK
  6. VICODIN [Concomitant]
  7. SOMA [Concomitant]

REACTIONS (10)
  - GASTRIC ULCER [None]
  - VOMITING [None]
  - RASH [None]
  - DRUG INEFFECTIVE [None]
  - ABDOMINAL DISCOMFORT [None]
  - WEIGHT DECREASED [None]
  - MALAISE [None]
  - KIDNEY INFECTION [None]
  - CHRONIC OBSTRUCTIVE PULMONARY DISEASE [None]
  - INJECTION SITE RASH [None]
